FAERS Safety Report 22711252 (Version 2)
Quarter: 2025Q2

REPORT INFORMATION
  Report Type: Report from Study
  Country: CA (occurrence: CA)
  Receive Date: 20230717
  Receipt Date: 20250617
  Transmission Date: 20250716
  Serious: Yes (Other)
  Sender: TAKEDA
  Company Number: CA-TAKEDA-2023TUS067554

PATIENT
  Sex: Male

DRUGS (4)
  1. VEDOLIZUMAB [Suspect]
     Active Substance: VEDOLIZUMAB
     Indication: Colitis ulcerative
  2. VEDOLIZUMAB [Suspect]
     Active Substance: VEDOLIZUMAB
     Dosage: 300 MILLIGRAM, Q6WEEKS
     Dates: start: 20230715
  3. PREDNISONE [Concomitant]
     Active Substance: PREDNISONE
  4. ASACOL [Concomitant]
     Active Substance: MESALAMINE

REACTIONS (2)
  - Colitis ulcerative [Unknown]
  - Gastroenteritis viral [Unknown]
